FAERS Safety Report 8853019 (Version 2)
Quarter: 2012Q4

REPORT INFORMATION
  Report Type: 
  Country: US (occurrence: US)
  Receive Date: 20121022
  Receipt Date: 20121205
  Transmission Date: 20130627
  Serious: Yes (Hospitalization)
  Sender: FDA-Public Use
  Company Number: US-GILEAD-2012-0063229

PATIENT
  Sex: Male

DRUGS (4)
  1. LETAIRIS [Suspect]
     Indication: PULMONARY ARTERIAL HYPERTENSION
     Dosage: 10 mg, UNK
     Route: 048
     Dates: start: 20100712
  2. TREPROSTINIL [Suspect]
  3. SILDENAFIL [Concomitant]
  4. DILTIAZEM [Concomitant]

REACTIONS (2)
  - Pulmonary arterial hypertension [Unknown]
  - Interstitial lung disease [Unknown]
